FAERS Safety Report 6617976-4 (Version None)
Quarter: 2010Q1

REPORT INFORMATION
  Report Type: 
  Country: None (occurrence: None)
  Receive Date: 20100308
  Receipt Date: 20100302
  Transmission Date: 20100710
  Serious: Yes (Death, Hospitalization, Other)
  Sender: FDA-Public Use
  Company Number: PHEH2009US07881

PATIENT
  Sex: Male

DRUGS (22)
  1. ZELNORM [Suspect]
     Indication: IRRITABLE BOWEL SYNDROME
  2. ZOFRAN [Concomitant]
  3. PROMETHAZINE [Concomitant]
  4. ONDANSETRON [Concomitant]
  5. CARBIDOPA AND LEVODOPA [Concomitant]
  6. FUROSEMIDE [Concomitant]
  7. METOPROLOL TARTRATE [Concomitant]
  8. LISINOPRIL [Concomitant]
  9. OMEPRAZOLE [Concomitant]
  10. TERAZOSIN HCL [Concomitant]
  11. AGGRENOX [Concomitant]
  12. PLAVIX [Concomitant]
  13. COUMADIN [Concomitant]
  14. GATIFLOXACIN [Concomitant]
  15. METOCLOPRAMIDE [Concomitant]
  16. ASPIRIN [Concomitant]
  17. REGLAN [Concomitant]
  18. ACIPHEX [Concomitant]
  19. CALCITONIN [Concomitant]
  20. VIAGRA [Concomitant]
  21. GEMFIBROZIL [Concomitant]
     Indication: HYPERCHOLESTEROLAEMIA
  22. LIPITOR [Concomitant]

REACTIONS (11)
  - ACUTE MYOCARDIAL INFARCTION [None]
  - CARDIO-RESPIRATORY ARREST [None]
  - CARDIOGENIC SHOCK [None]
  - DYSPNOEA [None]
  - IMPAIRED GASTRIC EMPTYING [None]
  - INJURY [None]
  - LEG AMPUTATION [None]
  - NAUSEA [None]
  - STENT PLACEMENT [None]
  - VOMITING [None]
  - WEIGHT DECREASED [None]
